FAERS Safety Report 7961314-1 (Version None)
Quarter: 2011Q4

REPORT INFORMATION
  Report Type: 
  Country: None (occurrence: None)
  Receive Date: 20111207
  Receipt Date: 20111202
  Transmission Date: 20120403
  Serious: Yes (Death)
  Sender: FDA-Public Use
  Company Number: PHEH2011US010851

PATIENT
  Age: 76 Year
  Sex: Female
  Weight: 61.224 kg

DRUGS (1)
  1. TOBI [Suspect]
     Dosage: 300 MG, BID
     Dates: start: 20111021, end: 20111117

REACTIONS (1)
  - DEATH [None]
